FAERS Safety Report 10249465 (Version 1)
Quarter: 2014Q2

REPORT INFORMATION
  Report Type: Spontaneous
  Country: US (occurrence: None)
  Receive Date: 20140516
  Receipt Date: 20140516
  Transmission Date: 20141212
  Serious: Yes (Hospitalization)
  Sender: FDA-Public Use
  Company Number: E2007-01637-SPO-US

PATIENT
  Age: 20 Year
  Sex: Male

DRUGS (1)
  1. FYCOMPA [Suspect]
     Indication: CONVULSION
     Route: 048

REACTIONS (2)
  - Homicidal ideation [None]
  - Suicide attempt [None]
